FAERS Safety Report 20418247 (Version 4)
Quarter: 2022Q1

REPORT INFORMATION
  Report Type: Spontaneous
  Country: SE (occurrence: SE)
  Receive Date: 20220202
  Receipt Date: 20220315
  Transmission Date: 20220423
  Serious: Yes (Hospitalization, Other)
  Sender: FDA-Public Use
  Company Number: SE-NOVARTISPH-NVSC2022SE022949

PATIENT
  Age: 30 Year
  Sex: Male

DRUGS (7)
  1. MIRTAZAPINE [Suspect]
     Active Substance: MIRTAZAPINE
     Indication: Schizophrenia
     Dosage: 45 MILLIGRAM, QD
     Route: 048
     Dates: start: 202006
  2. QUETIAPINE [Suspect]
     Active Substance: QUETIAPINE
     Indication: Schizophrenia
     Dosage: 90 MILLIGRAM, QD
     Route: 065
     Dates: start: 2020
  3. QUETIAPINE [Suspect]
     Active Substance: QUETIAPINE
     Dosage: 300 MG, QD
     Route: 065
     Dates: start: 2020, end: 2020
  4. QUETIAPINE [Suspect]
     Active Substance: QUETIAPINE
     Dosage: 900 MILLIGRAM, QD
     Route: 065
     Dates: start: 202006, end: 2020
  5. QUETIAPINE [Suspect]
     Active Substance: QUETIAPINE
     Dosage: 900 MILLIGRAM, QD
     Route: 065
     Dates: start: 202011
  6. LITHIUM [Suspect]
     Active Substance: LITHIUM
     Indication: Product used for unknown indication
     Dosage: 210 MG, QD
     Route: 065
     Dates: start: 201810
  7. LITHIUM [Suspect]
     Active Substance: LITHIUM
     Dosage: 168 MILLIGRAM, QD
     Route: 065
     Dates: start: 202006

REACTIONS (4)
  - Emotional disorder [Recovered/Resolved]
  - Asocial behaviour [Recovered/Resolved]
  - Psychotic symptom [Recovered/Resolved]
  - Cognitive disorder [Recovered/Resolved]
